FAERS Safety Report 12337763 (Version 1)
Quarter: 2016Q2

REPORT INFORMATION
  Report Type: Other
  Country: US (occurrence: US)
  Receive Date: 20160505
  Receipt Date: 20160505
  Transmission Date: 20160815
  Serious: Yes (Other)
  Sender: FDA-Public Use
  Company Number: US-MDT-ADR-2016-00805

PATIENT
  Age: 11 Year
  Sex: Male

DRUGS (4)
  1. BOTULINUM TOXIN [Suspect]
     Active Substance: BOTULINUM TOXIN TYPE A
     Route: 030
  2. DIAZEPAM. [Suspect]
     Active Substance: DIAZEPAM
     Route: 065
  3. METHADONE [Suspect]
     Active Substance: METHADONE HYDROCHLORIDE
     Route: 065
  4. BACLOFEN. [Suspect]
     Active Substance: BACLOFEN
     Route: 065

REACTIONS (14)
  - Condition aggravated [Unknown]
  - Posture abnormal [Unknown]
  - Dystonic tremor [Unknown]
  - Pain [Recovered/Resolved]
  - Muscular weakness [Unknown]
  - Oromandibular dystonia [Unknown]
  - Dystonia [Unknown]
  - Medical device site infection [Unknown]
  - Therapeutic response decreased [Unknown]
  - Dyskinesia [Unknown]
  - Performance status decreased [Unknown]
  - Torticollis [Recovered/Resolved]
  - Road traffic accident [Unknown]
  - Medical device site discharge [Unknown]
